FAERS Safety Report 4357680-9 (Version None)
Quarter: 2004Q2

REPORT INFORMATION
  Report Type: 
  Country: None (occurrence: None)
  Receive Date: 20040511
  Receipt Date: 20040413
  Transmission Date: 20050107
  Serious: Yes (Hospitalization)
  Sender: FDA-Public Use
  Company Number: 12557856

PATIENT
  Age: 53 Year
  Sex: Female

DRUGS (8)
  1. TAXOL [Suspect]
     Indication: BREAST CANCER METASTATIC
     Dosage: 120 MILLIGRAM 1/1 WEEK IV
     Route: 042
     Dates: start: 20040326, end: 20040326
  2. ADRIAMYCIN PFS [Suspect]
     Indication: BREAST CANCER METASTATIC
     Dosage: 30 MILLIGRAM 1/1 WEEK IV
     Route: 042
     Dates: start: 20040326, end: 20040326
  3. DARVOCET (ACETAMINOPHEN+PROPOXYPHENE NAP) [Concomitant]
  4. TUMS (CALCIUM CARBONATE) [Concomitant]
  5. SINGULAIR (MONTSLUKAST) [Concomitant]
  6. ZYRTEC [Concomitant]
  7. PROTONIX [Concomitant]
  8. HUMIBID (GUAIFENESIN) [Concomitant]

REACTIONS (3)
  - FEBRILE NEUTROPENIA [None]
  - METASTASES TO LUNG [None]
  - PNEUMONIA [None]
